FAERS Safety Report 5768734-4 (Version None)
Quarter: 2008Q2

REPORT INFORMATION
  Report Type: 
  Country: None (occurrence: None)
  Receive Date: 20080612
  Receipt Date: 20080530
  Transmission Date: 20081010
  Serious: Yes (Hospitalization)
  Sender: FDA-Public Use
  Company Number: CA-BOEHRINGER INGELHEIM GMBH, GERMANY-2008-CN-00246CN

PATIENT
  Age: 69 Year
  Sex: Male

DRUGS (4)
  1. FLOMAX [Suspect]
     Indication: BENIGN PROSTATIC HYPERPLASIA
     Dates: start: 20080422, end: 20080501
  2. NITROGLYCERIN [Concomitant]
  3. METOPROLOL [Concomitant]
  4. ASPIRIN [Concomitant]

REACTIONS (2)
  - BLOOD IRON ABNORMAL [None]
  - CARDIAC DISORDER [None]
